FAERS Safety Report 6789784-5 (Version None)
Quarter: 2010Q2

REPORT INFORMATION
  Report Type: 
  Country: None (occurrence: None)
  Receive Date: 20100624
  Receipt Date: 20100615
  Transmission Date: 20101027
  Serious: Yes (Other)
  Sender: FDA-Public Use
  Company Number: US-PFIZER INC-2010074867

PATIENT
  Sex: Female

DRUGS (4)
  1. LIPITOR [Suspect]
     Dosage: UNK
  2. METOPROLOL [Suspect]
     Dosage: UNK
  3. CLONIDINE [Suspect]
     Dosage: UNK
  4. CLONIDINE [Suspect]
     Dosage: UNK

REACTIONS (2)
  - ALOPECIA [None]
  - BLOOD PRESSURE FLUCTUATION [None]
